FAERS Safety Report 24379896 (Version 2)
Quarter: 2025Q1

REPORT INFORMATION
  Report Type: Spontaneous
  Country: PL (occurrence: PL)
  Receive Date: 20240930
  Receipt Date: 20250116
  Transmission Date: 20250409
  Serious: Yes (Life-Threatening, Hospitalization)
  Sender: NOVARTIS
  Company Number: None

PATIENT
  Age: 52 Year
  Sex: Female
  Weight: 82 kg

DRUGS (2)
  1. RIBOCICLIB [Suspect]
     Active Substance: RIBOCICLIB
     Indication: Malignant nipple neoplasm
     Dosage: 600 MG, Q24H
     Route: 048
     Dates: start: 20201031, end: 20201119
  2. LETROZOLE [Suspect]
     Active Substance: LETROZOLE
     Indication: Malignant nipple neoplasm
     Dosage: 2.5 MG, Q24H
     Route: 048
     Dates: start: 20201031, end: 20201119

REACTIONS (3)
  - Urinary tract infection [Recovering/Resolving]
  - Pancytopenia [Recovering/Resolving]
  - Liver injury [Recovering/Resolving]

NARRATIVE: CASE EVENT DATE: 20201124
